FAERS Safety Report 5317387-8 (Version None)
Quarter: 2007Q2

REPORT INFORMATION
  Report Type: 
  Country: None (occurrence: None)
  Receive Date: 20070504
  Receipt Date: 20070426
  Transmission Date: 20071010
  Serious: Yes (Other)
  Sender: FDA-Public Use
  Company Number: GR-ABBOTT-07P-066-0366331-00

PATIENT
  Age: 22 Year
  Sex: Male

DRUGS (5)
  1. CLARITHROMYCIN [Suspect]
     Indication: PYREXIA
     Route: 048
     Dates: start: 20070414, end: 20070422
  2. CLARITHROMYCIN [Suspect]
     Route: 048
     Dates: start: 20070409, end: 20070411
  3. TREBON [Concomitant]
     Indication: DRUG USE FOR UNKNOWN INDICATION
     Route: 048
     Dates: start: 20070415, end: 20070417
  4. AMBROXOL HYDROCHLORIDE [Concomitant]
     Indication: COUGH
     Route: 048
     Dates: start: 20070414, end: 20070414
  5. PENTOXYVERINE CITRATE [Concomitant]
     Indication: COUGH
     Route: 048
     Dates: start: 20070412, end: 20070413

REACTIONS (3)
  - ASTHENIA [None]
  - DIZZINESS [None]
  - TACHYCARDIA [None]
